FAERS Safety Report 7269073-5 (Version None)
Quarter: 2011Q1

REPORT INFORMATION
  Report Type: 
  Country: None (occurrence: None)
  Receive Date: 20110202
  Receipt Date: 20110121
  Transmission Date: 20110831
  Serious: Yes (Hospitalization)
  Sender: FDA-Public Use
  Company Number: US-BIOGENIDEC-2010BI040834

PATIENT
  Age: 59 Year
  Sex: Female

DRUGS (3)
  1. TYSABRI [Suspect]
     Route: 042
     Dates: start: 20061127, end: 20080807
  2. TYSABRI [Suspect]
     Indication: MULTIPLE SCLEROSIS
     Route: 042
     Dates: start: 20081001, end: 20100629
  3. TYSABRI [Suspect]
     Route: 042
     Dates: start: 20110112

REACTIONS (9)
  - HYPERTENSION [None]
  - DEPRESSION [None]
  - OSTEOARTHRITIS [None]
  - COGNITIVE DISORDER [None]
  - VIRAL INFECTION [None]
  - FUNGAL INFECTION [None]
  - RESPIRATORY TRACT INFECTION [None]
  - DRUG INEFFECTIVE [None]
  - MULTIPLE SCLEROSIS RELAPSE [None]
